FAERS Safety Report 15483778 (Version 1)
Quarter: 2018Q4

REPORT INFORMATION
  Report Type: Report from Study
  Country: ES (occurrence: ES)
  Receive Date: 20181010
  Receipt Date: 20181010
  Transmission Date: 20190205
  Serious: Yes (Hospitalization)
  Sender: FDA-Public Use
  Company Number: ES-TEVA-2018-ES-962625

PATIENT
  Age: 83 Year
  Sex: Female
  Weight: 55 kg

DRUGS (2)
  1. PACLITAXEL. [Suspect]
     Active Substance: PACLITAXEL
     Indication: NON-SMALL CELL LUNG CANCER
     Dosage: || DOSIS UNIDAD FRECUENCIA: 150 MG/M2-MILIGRAMOS/METRO CUADRADO || DOSIS POR TOMA: 150 MG/M2-MILIGRA
     Route: 042
     Dates: start: 20160712
  2. CARBOPLATIN. [Suspect]
     Active Substance: CARBOPLATIN
     Indication: NON-SMALL CELL LUNG CANCER
     Dosage: || UNIDAD DE FRECUENCIA: 3 SEMANA
     Route: 042
     Dates: start: 20160712

REACTIONS (2)
  - Diarrhoea [Recovered/Resolved]
  - Hypomagnesaemia [Recovered/Resolved with Sequelae]

NARRATIVE: CASE EVENT DATE: 20161001
